FAERS Safety Report 8431748-X (Version None)
Quarter: 2012Q2

REPORT INFORMATION
  Report Type: 
  Country: None (occurrence: None)
  Receive Date: 20120323
  Receipt Date: 20110628
  Transmission Date: 20120825
  Serious: Yes (Hospitalization)
  Sender: FDA-Public Use
  Company Number: 163-21880-11063697

PATIENT
  Age: 90 Year
  Sex: Female

DRUGS (2)
  1. LENALIDOMIDE [Suspect]
     Indication: MULTIPLE MYELOMA
     Dosage: 25 MG, QD FOR 21 DAYS, PO, 15 MG, QD FOR 21 DAYS, PO
     Route: 048
     Dates: start: 20110501, end: 20110601
  2. LENALIDOMIDE [Suspect]
     Indication: MULTIPLE MYELOMA
     Dosage: 25 MG, QD FOR 21 DAYS, PO, 15 MG, QD FOR 21 DAYS, PO
     Route: 048
     Dates: start: 20110630

REACTIONS (2)
  - ASTHENIA [None]
  - DEHYDRATION [None]
